FAERS Safety Report 6814742-1 (Version None)
Quarter: 2010Q3

REPORT INFORMATION
  Report Type: 
  Country: None (occurrence: None)
  Receive Date: 20100702
  Receipt Date: 20100621
  Transmission Date: 20110219
  Serious: Yes (Life-Threatening, Hospitalization)
  Sender: FDA-Public Use
  Company Number: JP-PFIZER INC-2010028829

PATIENT
  Age: 49 Year
  Sex: Female
  Weight: 59 kg

DRUGS (14)
  1. IRINOTECAN HCL [Suspect]
     Indication: COLON CANCER
     Dosage: 150 MG/M2, UNK
     Route: 041
     Dates: start: 20080528
  2. IRINOTECAN HCL [Suspect]
     Dosage: 200 MG, UNK
     Route: 041
     Dates: start: 20081120, end: 20081209
  3. FLUOROURACIL [Suspect]
     Indication: COLON CANCER
     Dosage: 400 MG/M2, UNK
     Route: 040
     Dates: start: 20080528, end: 20080528
  4. FLUOROURACIL [Suspect]
     Dosage: 2400 MG/M2/D 1-2
     Route: 041
     Dates: start: 20080528, end: 20080528
  5. FLUOROURACIL [Suspect]
     Dosage: 600 MG, UNK
     Route: 040
     Dates: start: 20081120, end: 20081209
  6. FLUOROURACIL [Suspect]
     Dosage: 3600 MG, UNK
     Route: 041
     Dates: start: 20081120, end: 20081209
  7. ERBITUX [Suspect]
     Indication: COLON CANCER
     Dosage: 400 MG/M2, UNK
     Route: 041
     Dates: start: 20081120, end: 20081120
  8. ERBITUX [Suspect]
     Dosage: 250 MG/M2, UNK
     Route: 041
     Dates: start: 20081202, end: 20081202
  9. ERBITUX [Suspect]
     Dosage: 200 MG/M2, UNK
     Route: 041
     Dates: start: 20081209, end: 20081209
  10. CALCIUM LEVOFOLINATE [Concomitant]
     Indication: COLON CANCER
     Dosage: 200 MG, UNK
     Route: 041
     Dates: start: 20080528
  11. CALCIUM LEVOFOLINATE [Concomitant]
     Dosage: 300 MG, UNK
     Route: 041
     Dates: start: 20081120, end: 20081209
  12. CHLOR-TRIMETON [Concomitant]
     Indication: PREMEDICATION
     Dosage: 10 MG, UNK
     Route: 041
     Dates: start: 20081120, end: 20081209
  13. DECADRON #1 [Concomitant]
     Indication: PREMEDICATION
     Dosage: 8 MG, UNK
     Route: 041
     Dates: start: 20081120, end: 20081209
  14. KYTRIL [Concomitant]
     Indication: PREMEDICATION
     Dosage: 3 MG, UNK
     Route: 041
     Dates: start: 20081120, end: 20081120

REACTIONS (1)
  - INFUSION SITE INFECTION [None]
